FAERS Safety Report 8408444-8 (Version None)
Quarter: 2012Q2

REPORT INFORMATION
  Report Type: 
  Country: None (occurrence: None)
  Receive Date: 20120604
  Receipt Date: 20120530
  Transmission Date: 20120825
  Serious: Yes (Death, Hospitalization)
  Sender: FDA-Public Use
  Company Number: JP-ABBOTT-11P-087-0710059-00

PATIENT
  Sex: Male
  Weight: 63 kg

DRUGS (7)
  1. HUMIRA [Suspect]
     Indication: RHEUMATOID ARTHRITIS
     Route: 058
     Dates: start: 20101202, end: 20110126
  2. METHOTREXATE SODIUM [Suspect]
     Dates: start: 20100208, end: 20110201
  3. METHOTREXATE SODIUM [Suspect]
     Indication: PRODUCT USED FOR UNKNOWN INDICATION
     Dates: start: 20080310, end: 20100207
  4. STEROID [Concomitant]
     Indication: RHEUMATOID ARTHRITIS
  5. METHOTREXATE [Concomitant]
     Indication: RHEUMATOID ARTHRITIS
     Route: 048
  6. AMLODIPINE BESYLATE [Concomitant]
     Indication: HYPERTENSION
     Route: 048
     Dates: start: 20101111, end: 20110208
  7. PREDNISOLONE [Concomitant]
     Indication: RHEUMATOID ARTHRITIS
     Route: 048
     Dates: start: 20100811, end: 20101120

REACTIONS (9)
  - CONDITION AGGRAVATED [None]
  - ORGANISING PNEUMONIA [None]
  - INTERSTITIAL LUNG DISEASE [None]
  - ARTHRALGIA [None]
  - DECREASED APPETITE [None]
  - PYREXIA [None]
  - RESPIRATORY DISTRESS [None]
  - STAPHYLOCOCCUS TEST POSITIVE [None]
  - RHEUMATOID ARTHRITIS [None]
